FAERS Safety Report 20782818 (Version 1)
Quarter: 2022Q2

REPORT INFORMATION
  Report Type: Spontaneous
  Country: AR (occurrence: AR)
  Receive Date: 20220504
  Receipt Date: 20220504
  Transmission Date: 20220720
  Serious: No
  Sender: FDA-Public Use
  Company Number: AR-PFIZER INC-202200539432

PATIENT
  Age: 14 Year
  Sex: Female

DRUGS (1)
  1. GENOTROPIN [Suspect]
     Active Substance: SOMATROPIN
     Indication: Growth hormone deficiency
     Dosage: 1.5 TO 2MG, DAILY (7 TIMES PER WEEK)
     Dates: start: 20190419

REACTIONS (3)
  - Device mechanical issue [Unknown]
  - Device malfunction [Unknown]
  - Drug dose omission by device [Unknown]
